FAERS Safety Report 21116414 (Version 2)
Quarter: 2022Q4

REPORT INFORMATION
  Report Type: Spontaneous
  Country: US (occurrence: US)
  Receive Date: 20220721
  Receipt Date: 20221006
  Transmission Date: 20230113
  Serious: Yes (Other)
  Sender: FDA-Public Use
  Company Number: US-BEH-2022147598

PATIENT
  Age: 22 Year

DRUGS (2)
  1. IDELVION [Suspect]
     Active Substance: COAGULATION FACTOR IX RECOMBINANT HUMAN
     Dosage: 50 INTERNATIONAL UNIT/KILOGRAM EVERY 10 DAYS
     Route: 065
     Dates: start: 2017
  2. IDELVION [Suspect]
     Active Substance: COAGULATION FACTOR IX RECOMBINANT HUMAN
     Dosage: 50 INTERNATIONAL UNIT/KILOGRAM EVERY 10 DAYS
     Route: 065
     Dates: start: 2017

REACTIONS (3)
  - Haemarthrosis [Unknown]
  - Poor venous access [Unknown]
  - Pain [Unknown]
